FAERS Safety Report 13938668 (Version 9)
Quarter: 2019Q1

REPORT INFORMATION
  Report Type: Report from Study
  Country: None (occurrence: US)
  Receive Date: 20170906
  Receipt Date: 20190117
  Transmission Date: 20190417
  Serious: Yes (Hospitalization, Other)
  Sender: FDA-Public Use
  Company Number: US-ABBVIE-17K-163-1866582-00

PATIENT
  Age: 62 Year
  Sex: Male

DRUGS (2)
  1. HUMIRA [Suspect]
     Active Substance: ADALIMUMAB
     Indication: RHEUMATOID ARTHRITIS
     Route: 058
  2. HUMIRA [Suspect]
     Active Substance: ADALIMUMAB
     Route: 058

REACTIONS (32)
  - Knee arthroplasty [Unknown]
  - Back pain [Unknown]
  - Hyperhidrosis [Unknown]
  - Pain in extremity [Unknown]
  - Asthenia [Not Recovered/Not Resolved]
  - Rheumatoid lung [Unknown]
  - Occupational exposure to toxic agent [Unknown]
  - Hypertension [Unknown]
  - Accident [Unknown]
  - Pain [Recovering/Resolving]
  - Shoulder operation [Unknown]
  - Pneumonia [Recovered/Resolved]
  - Foreign body in respiratory tract [Recovering/Resolving]
  - Osteoarthritis [Unknown]
  - Fatigue [Unknown]
  - Post procedural complication [Unknown]
  - Chronic obstructive pulmonary disease [Unknown]
  - Atypical pneumonia [Unknown]
  - Hip arthroplasty [Recovering/Resolving]
  - Joint arthroplasty [Recovering/Resolving]
  - Prostatic operation [Unknown]
  - Temperature intolerance [Unknown]
  - Wound complication [Unknown]
  - Intervertebral disc operation [Recovering/Resolving]
  - Coronary artery occlusion [Unknown]
  - Prostatic operation [Unknown]
  - Upper respiratory tract infection [Recovering/Resolving]
  - Traumatic lung injury [Recovering/Resolving]
  - Gun shot wound [Recovered/Resolved]
  - Arthropathy [Unknown]
  - Sepsis [Unknown]
  - Migraine [Not Recovered/Not Resolved]

NARRATIVE: CASE EVENT DATE: 201604
